FAERS Safety Report 16035171 (Version 2)
Quarter: 2019Q2

REPORT INFORMATION
  Report Type: Spontaneous
  Country: SI (occurrence: SI)
  Receive Date: 20190305
  Receipt Date: 20190503
  Transmission Date: 20190711
  Serious: Yes (Life-Threatening, Hospitalization)
  Sender: FDA-Public Use
  Company Number: SI-TEVA-2019-SI-1018376

PATIENT
  Age: 73 Year
  Sex: Female

DRUGS (8)
  1. SAB SIMPLEX [Concomitant]
     Dosage: 3X2/DAY
  2. HELEX [Concomitant]
     Active Substance: ALPRAZOLAM
  3. BOPACATIN 10 MG/ML [Suspect]
     Active Substance: CARBOPLATIN
     Indication: OVARIAN CANCER
     Route: 042
     Dates: start: 20190116, end: 20190207
  4. REGLAN [Concomitant]
     Active Substance: METOCLOPRAMIDE HYDROCHLORIDE
  5. ACIPAN 40 MG [Concomitant]
  6. LACTECON [Concomitant]
     Dosage: LIQUIDS
  7. DUROGESIC 50 MIKROGRAMOV/H TRANSDERMALNI OBLIZ [Concomitant]
  8. NALGESIN FORTE 550 MG [Concomitant]

REACTIONS (5)
  - Nausea [Recovered/Resolved]
  - Dyspnoea [Recovered/Resolved]
  - Oxygen saturation decreased [Recovered/Resolved]
  - Hypertension [Recovered/Resolved]
  - Vomiting [Recovered/Resolved]

NARRATIVE: CASE EVENT DATE: 20190207
